FAERS Safety Report 7218636-1 (Version None)
Quarter: 2011Q1

REPORT INFORMATION
  Report Type: 
  Country: None (occurrence: None)
  Receive Date: 20110110
  Receipt Date: 20101230
  Transmission Date: 20110831
  Serious: Yes (Hospitalization)
  Sender: FDA-Public Use
  Company Number: NL-MEDIMMUNE-MEDI-0012140

PATIENT
  Sex: Male
  Weight: 11 kg

DRUGS (2)
  1. SYNAGIS [Suspect]
     Route: 030
     Dates: start: 20101104, end: 20101203
  2. SYNAGIS [Suspect]
     Route: 030
     Dates: start: 20101230, end: 20101230

REACTIONS (1)
  - BLOOD CALCIUM INCREASED [None]
